FAERS Safety Report 4798151-5 (Version None)
Quarter: 2005Q4

REPORT INFORMATION
  Report Type: 
  Country: None (occurrence: None)
  Receive Date: 20051011
  Receipt Date: 20050930
  Transmission Date: 20060501
  Serious: Yes (Life-Threatening, Hospitalization)
  Sender: FDA-Public Use
  Company Number: 2005136881

PATIENT
  Age: 92 Year

DRUGS (11)
  1. PREDNISONE [Suspect]
     Indication: POLYMYALGIA RHEUMATICA
     Dosage: 1 MG (1 MG, 1 IN 1 D), ORAL
     Route: 048
     Dates: end: 20050914
  2. ALENDRONIC ACID (ALENDRONIC ACID) [Suspect]
     Indication: OSTEOPOROSIS PROPHYLAXIS
     Dosage: (70 MG, 1 IN 1 WK), ORAL
     Route: 048
     Dates: end: 20050914
  3. ASPIRIN [Suspect]
     Indication: PROPHYLAXIS
     Dosage: 75 MG (75 MG, 1 IN 1 D), ORAL
     Route: 048
     Dates: end: 20050914
  4. GLYCERYL TRINITRATE (GLYCERYL TRINITRATE) [Concomitant]
  5. DILTIAZEM [Concomitant]
  6. RANITIDINE HCL [Concomitant]
  7. ADCAL-D3 (CALCIUM CARBONATE, COLECALCIFEROL) [Concomitant]
  8. FERROUS SULPHATE (FERROUS SULFATE) [Concomitant]
  9. LISINOPRIL [Concomitant]
  10. FUSIDATE SODIUM (FUSIDATE SODIUM) [Concomitant]
  11. ATORVASTATIN CALCIUM [Concomitant]

REACTIONS (6)
  - GASTROINTESTINAL HAEMORRHAGE [None]
  - HAEMATEMESIS [None]
  - HAEMOGLOBIN INCREASED [None]
  - OESOPHAGEAL ULCER [None]
  - ORAL INTAKE REDUCED [None]
  - VOMITING [None]
